FAERS Safety Report 8986492 (Version 1)
Quarter: 2012Q4

REPORT INFORMATION
  Report Type: 
  Country: US (occurrence: US)
  Receive Date: 20121227
  Receipt Date: 20121227
  Transmission Date: 20130627
  Serious: Yes (Hospitalization, Disabling, Other)
  Sender: FDA-Public Use
  Company Number: US-SANOFI-AVENTIS-2012SA092810

PATIENT
  Age: 55 Year
  Sex: Female
  Weight: 59 kg

DRUGS (8)
  1. PLAQUENIL [Suspect]
     Indication: LUPUS SYNDROME
     Route: 048
     Dates: end: 2010
  2. PLAQUENIL [Suspect]
     Indication: ASTHMA
     Route: 048
     Dates: end: 2010
  3. LYRICA [Suspect]
     Indication: LUPUS SYNDROME
     Route: 065
     Dates: end: 2010
  4. CELEBREX [Suspect]
     Indication: LUPUS SYNDROME
     Route: 065
     Dates: end: 2010
  5. CYMBALTA [Concomitant]
     Dates: end: 2012
  6. SYNTHROID [Concomitant]
     Indication: THYROID DISORDER NOS
     Dates: end: 2012
  7. ATENOLOL [Concomitant]
     Indication: BLOOD PRESSURE HIGH
     Dates: end: 2012
  8. ANALGESICS [Concomitant]
     Indication: LOW BACK PAIN
     Dates: end: 2012

REACTIONS (7)
  - Joint swelling [Recovered/Resolved]
  - Pain [Recovered/Resolved]
  - Malaise [Recovered/Resolved]
  - Asthenia [Recovered/Resolved]
  - Systemic lupus erythematosus [Not Recovered/Not Resolved]
  - Drug ineffective [Unknown]
  - Off label use [Unknown]
